FAERS Safety Report 16200620 (Version 1)
Quarter: 2019Q2

REPORT INFORMATION
  Report Type: Spontaneous
  Country: US (occurrence: US)
  Receive Date: 20190416
  Receipt Date: 20190416
  Transmission Date: 20190711
  Serious: No
  Sender: FDA-Public Use
  Company Number: US-TEVA-2019-US-1037518

PATIENT

DRUGS (1)
  1. ACTAVIS TESTOSTERONE [Suspect]
     Active Substance: TESTOSTERONE

REACTIONS (2)
  - Skin burning sensation [Unknown]
  - Skin exfoliation [Not Recovered/Not Resolved]
